FAERS Safety Report 7724855-8 (Version None)
Quarter: 2011Q3

REPORT INFORMATION
  Report Type: 
  Country: None (occurrence: None)
  Receive Date: 20110829
  Receipt Date: 20110818
  Transmission Date: 20111222
  Serious: Yes (Other)
  Sender: FDA-Public Use
  Company Number: TPA2011A03376

PATIENT

DRUGS (9)
  1. ACTOS [Suspect]
     Indication: TYPE 2 DIABETES MELLITUS
     Dosage: 30 MG, 1IN1 D, PER ORAL
     Route: 048
     Dates: start: 20030301, end: 20110601
  2. BYETTA [Concomitant]
  3. CARDIZEM CD [Concomitant]
  4. MULTIVITAMIN [Concomitant]
  5. VYTORIN [Concomitant]
  6. GLIMEPIRIDE [Concomitant]
  7. METFORMIN HCL [Concomitant]
  8. LOTENSIN WITH HCTZ (HYDROCHLOROTHIAZIDE, BENAZEPRIL HYDROCHLORIDE) [Concomitant]
  9. VICTOZA [Concomitant]

REACTIONS (1)
  - BLADDER TRANSITIONAL CELL CARCINOMA [None]
